FAERS Safety Report 6428868-8 (Version None)
Quarter: 2009Q4

REPORT INFORMATION
  Report Type: 
  Country: None (occurrence: None)
  Receive Date: 20091104
  Receipt Date: 20091104
  Transmission Date: 20100525
  Serious: Yes (Other)
  Sender: FDA-Public Use
  Company Number: None

PATIENT
  Age: 38 Year
  Sex: Male
  Weight: 138.8007 kg

DRUGS (1)
  1. CELEXA [Suspect]
     Indication: STRESS AT WORK
     Dosage: 10MG DAILY, PO
     Route: 048
     Dates: start: 20090224, end: 20090719

REACTIONS (4)
  - AGGRESSION [None]
  - AGITATION [None]
  - IRRITABILITY [None]
  - NEGATIVISM [None]
